FAERS Safety Report 4803519-4 (Version None)
Quarter: 2005Q4

REPORT INFORMATION
  Report Type: 
  Country: None (occurrence: None)
  Receive Date: 20051014
  Receipt Date: 20050824
  Transmission Date: 20060501
  Serious: Yes (Death)
  Sender: FDA-Public Use
  Company Number: 2005115948

PATIENT
  Sex: Male

DRUGS (1)
  1. MAGNEX (SULBACTAM, CEFOPERAZONE) [Suspect]
     Indication: INFECTION
     Dosage: 2 GRAM (1 GRAM, BID), INTRAVENOUS
     Route: 042
     Dates: start: 20050719, end: 20050721

REACTIONS (2)
  - BRADYCARDIA [None]
  - CARDIAC ARREST [None]
